FAERS Safety Report 17421017 (Version 1)
Quarter: 2020Q1

REPORT INFORMATION
  Report Type: Spontaneous
  Country: US (occurrence: US)
  Receive Date: 20200214
  Receipt Date: 20200214
  Transmission Date: 20200409
  Serious: No
  Sender: FDA-Public Use
  Company Number: US-THERAPEUTICSMD-2020TMD00155

PATIENT
  Sex: Female

DRUGS (2)
  1. BIJUVA [Suspect]
     Active Substance: ESTRADIOL\PROGESTERONE
     Dosage: UNK
  2. UNSPECIFIED ESTROGEN [Suspect]
     Active Substance: ESTROGENS
     Dosage: UNK

REACTIONS (1)
  - Dysfunctional uterine bleeding [Unknown]
